FAERS Safety Report 6801174-5 (Version None)
Quarter: 2010Q2

REPORT INFORMATION
  Report Type: 
  Country: None (occurrence: None)
  Receive Date: 20100629
  Receipt Date: 20100617
  Transmission Date: 20101027
  Serious: Yes (Hospitalization)
  Sender: FDA-Public Use
  Company Number: FR-PFIZER INC-2010075722

PATIENT
  Age: 40 Year
  Sex: Female

DRUGS (13)
  1. NEURONTIN [Suspect]
     Dosage: 900MG ON 25APR2010 AND 600MG ON 26APR2010.
     Route: 048
     Dates: start: 20100425, end: 20100426
  2. PROPOFOL [Suspect]
     Dosage: 500 MG, SINGLE
     Route: 042
     Dates: start: 20100426, end: 20100426
  3. ATRACURIUM [Suspect]
     Dosage: 120 MG, SINGLE
     Route: 042
     Dates: start: 20100426, end: 20100426
  4. ULTIVA [Suspect]
     Dosage: 0.89 MG, SINGLE
     Route: 042
     Dates: start: 20100426, end: 20100426
  5. NORMACOL [Suspect]
     Dosage: UNK
     Route: 054
     Dates: start: 20100425, end: 20100425
  6. BETADINE [Suspect]
     Dosage: UNK
     Route: 003
     Dates: start: 20100425, end: 20100426
  7. BETADINE GYNECOLOGICAL [Suspect]
     Dosage: UNK
     Route: 067
     Dates: start: 20100426, end: 20100426
  8. AUGMENTIN '125' [Suspect]
     Dosage: 2G + 1G
     Route: 042
     Dates: start: 20100426, end: 20100426
  9. KETAMINE HCL [Suspect]
     Dosage: UNK
     Route: 042
     Dates: start: 20100426, end: 20100426
  10. ACUPAN [Suspect]
     Dosage: UNK
     Route: 042
     Dates: start: 20100426, end: 20100427
  11. DEXAMETHASONE [Suspect]
     Dosage: 4 MG, SINGLE
     Route: 042
     Dates: start: 20100426, end: 20100426
  12. ROPIVACAINE [Suspect]
     Dosage: 15 MG, SINGLE
     Route: 027
     Dates: start: 20100426, end: 20100426
  13. SPASFON [Suspect]
     Dosage: UNK
     Route: 042
     Dates: start: 20100426, end: 20100428

REACTIONS (4)
  - HAEMATURIA [None]
  - LYMPHOPENIA [None]
  - OLIGURIA [None]
  - RENAL FAILURE ACUTE [None]
